FAERS Safety Report 8553506-8 (Version None)
Quarter: 2012Q3

REPORT INFORMATION
  Report Type: 
  Country: None (occurrence: None)
  Receive Date: 20120731
  Receipt Date: 20120725
  Transmission Date: 20120928
  Serious: Yes (Hospitalization)
  Sender: FDA-Public Use
  Company Number: IN-PFIZER INC-2011303935

PATIENT
  Age: 46 Year
  Sex: Male

DRUGS (1)
  1. SUTENT [Suspect]
     Indication: METASTATIC RENAL CELL CARCINOMA
     Dosage: 50 MG, 1X/DAY
     Route: 048
     Dates: start: 20110718, end: 20120101

REACTIONS (8)
  - DIARRHOEA [None]
  - RASH [None]
  - COUGH [None]
  - DISEASE PROGRESSION [None]
  - MOUTH ULCERATION [None]
  - METASTATIC RENAL CELL CARCINOMA [None]
  - DYSPNOEA [None]
  - FLUID RETENTION [None]
